FAERS Safety Report 7214902-4 (Version None)
Quarter: 2011Q1

REPORT INFORMATION
  Report Type: 
  Country: None (occurrence: None)
  Receive Date: 20110107
  Receipt Date: 20100713
  Transmission Date: 20110831
  Serious: No
  Sender: FDA-Public Use
  Company Number: A0857492A

PATIENT
  Age: 72 Year
  Sex: Female
  Weight: 84.1 kg

DRUGS (7)
  1. NEXIUM [Concomitant]
     Dosage: 1CAP TWICE PER DAY
     Route: 048
  2. ISOSORBIDE DINITRATE [Concomitant]
     Dosage: 1TAB PER DAY
     Route: 048
     Dates: start: 20090808
  3. RANEXA [Concomitant]
     Dosage: 1TAB TWICE PER DAY
     Route: 048
     Dates: start: 20090603
  4. TOPROL-XL [Concomitant]
     Dosage: .5TAB PER DAY
     Route: 048
     Dates: start: 20100317
  5. NORVASC [Concomitant]
     Dosage: 1TAB TWICE PER DAY
     Route: 048
     Dates: start: 20090707
  6. VITAMIN D [Concomitant]
     Dosage: 1CAP WEEKLY
     Route: 048
     Dates: start: 20090707
  7. LOVAZA [Suspect]
     Dosage: 1CAP FOUR TIMES PER DAY
     Route: 048

REACTIONS (3)
  - ERUCTATION [None]
  - PRODUCT QUALITY ISSUE [None]
  - DYSGEUSIA [None]
